FAERS Safety Report 18694062 (Version 1)
Quarter: 2021Q1

REPORT INFORMATION
  Report Type: Spontaneous
  Country: JP (occurrence: JP)
  Receive Date: 20210104
  Receipt Date: 20210104
  Transmission Date: 20210419
  Serious: Yes (Other)
  Sender: FDA-Public Use
  Company Number: NVSJ2020JP014608

PATIENT
  Age: 76 Year
  Sex: Female

DRUGS (1)
  1. PARLODEL [Suspect]
     Active Substance: BROMOCRIPTINE MESYLATE
     Indication: ACROMEGALY
     Dosage: UNK
     Route: 048

REACTIONS (3)
  - Colon cancer [Unknown]
  - Aortic valve stenosis [Unknown]
  - Thyroid neoplasm [Unknown]
